FAERS Safety Report 6051869-9 (Version None)
Quarter: 2009Q1

REPORT INFORMATION
  Report Type: 
  Country: None (occurrence: None)
  Receive Date: 20090126
  Receipt Date: 20090120
  Transmission Date: 20090719
  Serious: Yes (Death)
  Sender: FDA-Public Use
  Company Number: MY-AVENTIS-200820451GDDC

PATIENT
  Age: 58 Year
  Sex: Male

DRUGS (5)
  1. ARAVA [Suspect]
     Indication: RHEUMATOID ARTHRITIS
     Route: 048
     Dates: start: 20070601, end: 20080415
  2. METHOTREXATE [Concomitant]
     Indication: RHEUMATOID ARTHRITIS
     Route: 048
     Dates: start: 20080101, end: 20080415
  3. FOLATE [Concomitant]
     Indication: RHEUMATOID ARTHRITIS
     Route: 048
     Dates: start: 20080101, end: 20080415
  4. ACETAMINOPHEN [Concomitant]
     Indication: RHEUMATOID ARTHRITIS
     Dosage: DOSE: 1G TID
     Route: 048
     Dates: start: 19990101, end: 20080415
  5. CELECOXIB [Concomitant]
     Indication: RHEUMATOID ARTHRITIS
     Dosage: DOSE: 200MG/QD
     Route: 048
     Dates: end: 20080415

REACTIONS (3)
  - COUGH [None]
  - DYSPNOEA [None]
  - PNEUMONITIS [None]
